FAERS Safety Report 10664909 (Version 1)
Quarter: 2014Q4

REPORT INFORMATION
  Report Type: Report from Study
  Country: US (occurrence: US)
  Receive Date: 20141219
  Receipt Date: 20141219
  Transmission Date: 20150529
  Serious: Yes (Other)
  Sender: FDA-Public Use
  Company Number: US-JNJFOC-20141210058

PATIENT
  Age: 59 Year
  Sex: Female
  Weight: 106.14 kg

DRUGS (3)
  1. REMICADE [Suspect]
     Active Substance: INFLIXIMAB
     Indication: RHEUMATOID ARTHRITIS
     Route: 042
     Dates: start: 2011, end: 201110
  2. REMICADE [Suspect]
     Active Substance: INFLIXIMAB
     Indication: RHEUMATOID ARTHRITIS
     Route: 042
     Dates: start: 201203
  3. REMICADE [Suspect]
     Active Substance: INFLIXIMAB
     Indication: RHEUMATOID ARTHRITIS
     Route: 042
     Dates: start: 20140603, end: 201407

REACTIONS (11)
  - Blood potassium decreased [Unknown]
  - Glucose tolerance impaired [Unknown]
  - Surgery [Unknown]
  - Fall [Unknown]
  - Gastrooesophageal reflux disease [Unknown]
  - Dizziness [Unknown]
  - Vomiting [Unknown]
  - Influenza [Unknown]
  - Drug hypersensitivity [Unknown]
  - Weight decreased [Unknown]
  - Sinus disorder [Unknown]

NARRATIVE: CASE EVENT DATE: 20111223
